FAERS Safety Report 4785883-8 (Version None)
Quarter: 2005Q4

REPORT INFORMATION
  Report Type: 
  Country: None (occurrence: None)
  Receive Date: 20051003
  Receipt Date: 20050406
  Transmission Date: 20060501
  Serious: Yes (Hospitalization, Disabling)
  Sender: FDA-Public Use
  Company Number: US-ROCHE-401244

PATIENT
  Age: 14 Year
  Sex: Male
  Weight: 89.8 kg

DRUGS (4)
  1. ACCUTANE [Suspect]
     Dosage: FORMULATION = CAPSULE
     Route: 048
     Dates: start: 19890216, end: 19890818
  2. ACCUTANE [Suspect]
     Dosage: FORMULATION = CAPSULE
     Route: 048
     Dates: start: 19900313, end: 19901216
  3. ACCUTANE [Suspect]
     Dosage: FORMULATION = UNKNOWN
     Route: 048
     Dates: start: 19941229, end: 19950319
  4. TYLENOL (CAPLET) [Concomitant]
     Indication: DRUG USE FOR UNKNOWN INDICATION
     Route: 048

REACTIONS (41)
  - ABDOMINAL DISTENSION [None]
  - ACNE [None]
  - BACK PAIN [None]
  - BLOOD ALKALINE PHOSPHATASE INCREASED [None]
  - BLOOD CHOLESTEROL INCREASED [None]
  - BONE METABOLISM DISORDER [None]
  - CHEST DISCOMFORT [None]
  - COMPLICATIONS OF TRANSPLANTED KIDNEY [None]
  - CONDITION AGGRAVATED [None]
  - CONJUNCTIVITIS [None]
  - DEHYDRATION [None]
  - DISEASE RECURRENCE [None]
  - EPISTAXIS [None]
  - FRACTURE [None]
  - GLOMERULONEPHRITIS [None]
  - GLOMERULOSCLEROSIS [None]
  - HAEMATURIA [None]
  - HYPERGLYCAEMIA [None]
  - HYPERLIPIDAEMIA [None]
  - HYPERTENSION [None]
  - IMMUNOSUPPRESSANT DRUG LEVEL DECREASED [None]
  - KIDNEY SMALL [None]
  - KIDNEY TRANSPLANT REJECTION [None]
  - LABORATORY TEST INTERFERENCE [None]
  - MULTI-ORGAN DISORDER [None]
  - NIGHT BLINDNESS [None]
  - OBESITY [None]
  - PARAESTHESIA [None]
  - PERITONEAL DIALYSIS [None]
  - PHARYNGITIS [None]
  - PLATELET COUNT INCREASED [None]
  - PROTEINURIA [None]
  - REFLUX OESOPHAGITIS [None]
  - RENAL DISORDER [None]
  - RENAL FAILURE [None]
  - RENAL FAILURE CHRONIC [None]
  - RENAL TRANSPLANT [None]
  - SKIN PAPILLOMA [None]
  - TREMOR [None]
  - UPPER RESPIRATORY TRACT INFECTION [None]
  - VIRAL INFECTION [None]
